FAERS Safety Report 21962098 (Version 1)
Quarter: 2023Q1

REPORT INFORMATION
  Report Type: Report from Study
  Country: US (occurrence: US)
  Receive Date: 20230207
  Receipt Date: 20230207
  Transmission Date: 20230418
  Serious: Yes (Hospitalization)
  Sender: FDA-Public Use
  Company Number: US-ORG100014127-2022000568

PATIENT
  Age: 11 Year
  Sex: Female

DRUGS (12)
  1. LYSODREN [Suspect]
     Active Substance: MITOTANE
     Indication: Adrenal gland cancer
     Dosage: UP-TITRATED FROM 01 TABLET QID TO 02 TABLETS QID
     Route: 048
     Dates: start: 20220506
  2. ALBUMIN HUM INJ 25% [Concomitant]
     Indication: Product used for unknown indication
  3. DIPHENHYDRAM INJ 50MG/ML [Concomitant]
     Indication: Product used for unknown indication
  4. LASIX TAB 20MG [Concomitant]
     Indication: Product used for unknown indication
  5. METOPROL TAR TAB 25MG [Concomitant]
     Indication: Product used for unknown indication
  6. MIRALAX POW3350 NF [Concomitant]
     Indication: Product used for unknown indication
  7. NYSTATIN SUS 100000 [Concomitant]
     Indication: Product used for unknown indication
  8. ONDANSETRON [Concomitant]
     Active Substance: ONDANSETRON
     Indication: Product used for unknown indication
  9. OXYCODONE [Concomitant]
     Active Substance: OXYCODONE
     Indication: Product used for unknown indication
  10. PROTONIX TAB 20MG [Concomitant]
     Indication: Product used for unknown indication
  11. SENNATAB 8.6MG [Concomitant]
     Indication: Product used for unknown indication
  12. TYLENOL TAB 500MG [Concomitant]
     Indication: Product used for unknown indication

REACTIONS (2)
  - Nausea [Recovering/Resolving]
  - Fatigue [Recovering/Resolving]
